FAERS Safety Report 7901162-1 (Version None)
Quarter: 2011Q4

REPORT INFORMATION
  Report Type: 
  Country: None (occurrence: None)
  Receive Date: 20111108
  Receipt Date: 20111028
  Transmission Date: 20120403
  Serious: Yes (Other)
  Sender: FDA-Public Use
  Company Number: US-CELGENEUS-163-21880-11110310

PATIENT
  Sex: Male
  Weight: 95.567 kg

DRUGS (1)
  1. REVLIMID [Suspect]
     Dosage: 10 MILLIGRAM
     Route: 048
     Dates: start: 20111004

REACTIONS (2)
  - BLOOD URIC ACID INCREASED [None]
  - BASAL CELL CARCINOMA [None]
